FAERS Safety Report 6808612-2 (Version None)
Quarter: 2010Q2

REPORT INFORMATION
  Report Type: 
  Country: None (occurrence: None)
  Receive Date: 20100629
  Receipt Date: 20090714
  Transmission Date: 20101027
  Serious: Yes (Other)
  Sender: FDA-Public Use
  Company Number: US-PFIZER INC-2009243592

PATIENT
  Sex: Male

DRUGS (1)
  1. VIAGRA [Suspect]
     Dates: start: 20090714

REACTIONS (2)
  - ERECTION INCREASED [None]
  - INTENTIONAL DRUG MISUSE [None]
